FAERS Safety Report 6139043-9 (Version None)
Quarter: 2009Q1

REPORT INFORMATION
  Report Type: 
  Country: None (occurrence: None)
  Receive Date: 20090330
  Receipt Date: 20090324
  Transmission Date: 20090719
  Serious: Yes (Life-Threatening, Hospitalization, Disabling)
  Sender: FDA-Public Use
  Company Number: A0755524A

PATIENT
  Age: 45 Year
  Sex: Female

DRUGS (2)
  1. ASPIRIN + CAFFEINE + SALICYLAMIDE POWDER (ASPIRIN+CAFFEINE+SALICYLA) [Suspect]
     Indication: HEADACHE
     Dosage: SEE IMAGE /ORAL
     Route: 048
  2. ASPIRIN + CAFFEINE + PARACETAMOL POWDER(ACETAMINOPHEN + ASPIRIN +) [Suspect]
     Indication: HEADACHE
     Dosage: SEE IMAGE/ORAL
     Route: 048

REACTIONS (19)
  - ABASIA [None]
  - ASCITES [None]
  - COAGULOPATHY [None]
  - ENTEROCOCCAL BACTERAEMIA [None]
  - GASTROINTESTINAL DISORDER [None]
  - HYPERKALAEMIA [None]
  - HYPOKALAEMIA [None]
  - INTESTINAL DILATATION [None]
  - ISCHAEMIC HEPATITIS [None]
  - LARGE INTESTINAL HAEMORRHAGE [None]
  - METABOLIC ACIDOSIS [None]
  - MULTI-ORGAN FAILURE [None]
  - POST PROCEDURAL COMPLICATION [None]
  - PRODUCTIVE COUGH [None]
  - RENAL FAILURE [None]
  - RENAL TUBULAR NECROSIS [None]
  - SHOCK [None]
  - SINUSITIS [None]
  - THROMBOCYTOPENIA [None]
